FAERS Safety Report 24787570 (Version 3)
Quarter: 2025Q1

REPORT INFORMATION
  Report Type: Report from Study
  Country: US (occurrence: US)
  Receive Date: 20241230
  Receipt Date: 20250311
  Transmission Date: 20250409
  Serious: Yes (Hospitalization)
  Sender: ABBVIE
  Company Number: US-ABBVIE-6066388

PATIENT
  Age: 85 Year
  Sex: Female

DRUGS (2)
  1. VENCLEXTA [Suspect]
     Active Substance: VENETOCLAX
     Indication: Chronic lymphocytic leukaemia
     Dosage: LAST ADMIN DATE 2024
     Route: 048
     Dates: start: 202410
  2. VENCLEXTA [Suspect]
     Active Substance: VENETOCLAX
     Indication: Chronic lymphocytic leukaemia
     Route: 048

REACTIONS (11)
  - Haemoglobin abnormal [Recovered/Resolved]
  - Blood glucose abnormal [Unknown]
  - Nausea [Unknown]
  - Depression [Unknown]
  - Vomiting [Unknown]
  - Tremor [Unknown]
  - Anaemia [Unknown]
  - Asthenia [Unknown]
  - Tonsillar inflammation [Unknown]
  - Pain [Unknown]
  - Haemoglobin abnormal [Unknown]

NARRATIVE: CASE EVENT DATE: 20240101
